FAERS Safety Report 6031352-7 (Version None)
Quarter: 2009Q1

REPORT INFORMATION
  Report Type: 
  Country: None (occurrence: None)
  Receive Date: 20090108
  Receipt Date: 20081226
  Transmission Date: 20090719
  Serious: Yes (Other)
  Sender: FDA-Public Use
  Company Number: US-BAYER-200840423NA

PATIENT
  Age: 62 Year
  Sex: Female
  Weight: 54 kg

DRUGS (10)
  1. CLIMARA [Suspect]
     Indication: MENOPAUSAL SYMPTOMS
     Route: 062
     Dates: start: 19960601, end: 19961201
  2. OGEN [Suspect]
     Dates: start: 19900201, end: 19960601
  3. PROVERA [Suspect]
     Dates: start: 19960201, end: 19970101
  4. PREMARIN [Suspect]
     Dates: start: 19960901, end: 19961201
  5. PREMARIN [Suspect]
     Dates: start: 19981201, end: 19990201
  6. CYCRIN [Suspect]
     Dates: start: 19900201, end: 19960201
  7. PREMPRO [Suspect]
     Dates: start: 19961201, end: 20000701
  8. BLOOD PRESSURE MEDICATION (NOS) [Concomitant]
  9. FLUOXETINE [Concomitant]
     Indication: ANXIETY
     Dates: start: 20080401
  10. AMITRIPTYLINE HCL [Concomitant]
     Indication: INITIAL INSOMNIA
     Dates: start: 19800101

REACTIONS (3)
  - ANXIETY [None]
  - BREAST CANCER FEMALE [None]
  - SQUAMOUS CELL CARCINOMA OF SKIN [None]
